FAERS Safety Report 9690115 (Version 2)
Quarter: 2013Q4

REPORT INFORMATION
  Report Type: Report from Study
  Country: JP (occurrence: JP)
  Receive Date: 20131115
  Receipt Date: 20131115
  Transmission Date: 20140711
  Serious: Yes (Hospitalization)
  Sender: FDA-Public Use
  Company Number: PHHY2013JP032788

PATIENT
  Age: 40 Year
  Sex: Male

DRUGS (5)
  1. LEPONEX / CLOZARIL [Suspect]
     Indication: SCHIZOPHRENIA
     Dosage: 300 MG, DAILY
     Route: 048
     Dates: start: 20121010
  2. LEPONEX / CLOZARIL [Suspect]
     Dosage: 200 MG, DAILY
     Route: 048
     Dates: start: 20130401
  3. LEPONEX / CLOZARIL [Suspect]
     Dosage: 100 MG, MG
     Route: 048
     Dates: start: 20130409, end: 20130416
  4. LEVOTOMIN [Concomitant]
     Dosage: UNK UKN, UNK
  5. SOLANAX [Concomitant]
     Dosage: UNK UKN, UNK
     Route: 048

REACTIONS (5)
  - Malaise [Unknown]
  - Irritability [Recovered/Resolved]
  - Anxiety [Unknown]
  - Akathisia [Unknown]
  - Drug ineffective [Unknown]
